FAERS Safety Report 9665635 (Version 1)
Quarter: 2013Q4

REPORT INFORMATION
  Report Type: Spontaneous
  Country: DK (occurrence: FR)
  Receive Date: 20131104
  Receipt Date: 20131104
  Transmission Date: 20140711
  Serious: Yes (Hospitalization)
  Sender: FDA-Public Use
  Company Number: FR-FRI-1000050706

PATIENT
  Age: 38 Year
  Sex: Female

DRUGS (7)
  1. CITALOPRAM [Suspect]
     Dosage: 20 MG
     Route: 048
  2. DEPAKOTE [Suspect]
     Dosage: 2000 MG
     Route: 048
  3. TERALITHE [Suspect]
     Dosage: 2.5 DF
  4. CLOTIAZEPAM [Suspect]
     Dosage: 15 MG
  5. NICOPATCH [Concomitant]
  6. AIROMIR [Concomitant]
  7. QVAR [Concomitant]

REACTIONS (1)
  - Pleuropericarditis [Recovered/Resolved]
